FAERS Safety Report 5696356-2 (Version None)
Quarter: 2008Q2

REPORT INFORMATION
  Report Type: 
  Country: None (occurrence: None)
  Receive Date: 20080408
  Receipt Date: 20080326
  Transmission Date: 20081010
  Serious: Yes (Other)
  Sender: FDA-Public Use
  Company Number: US-PFIZER INC-2008027401

PATIENT
  Age: 56 Year
  Sex: Female

DRUGS (4)
  1. CHANTIX [Suspect]
     Indication: SMOKING CESSATION THERAPY
     Dates: start: 20070801, end: 20070815
  2. LITHIUM CARBONATE [Interacting]
     Indication: BIPOLAR DISORDER
  3. STRATTERA [Interacting]
     Indication: BIPOLAR DISORDER
  4. LAMICTAL [Interacting]
     Indication: BIPOLAR DISORDER

REACTIONS (12)
  - ACTIVITIES OF DAILY LIVING IMPAIRED [None]
  - CATATONIA [None]
  - DEPRESSED MOOD [None]
  - DISTURBANCE IN SOCIAL BEHAVIOUR [None]
  - DRUG INTERACTION [None]
  - FATIGUE [None]
  - FEAR [None]
  - HYPERSOMNIA [None]
  - MENTAL DISORDER [None]
  - MOOD ALTERED [None]
  - PSYCHOTIC DISORDER [None]
  - SUICIDAL IDEATION [None]
